FAERS Safety Report 4413828-9 (Version None)
Quarter: 2004Q3

REPORT INFORMATION
  Report Type: 
  Country: None (occurrence: None)
  Receive Date: 20040728
  Receipt Date: 20040721
  Transmission Date: 20050211
  Serious: Yes (Other)
  Sender: FDA-Public Use
  Company Number: 2004222770US

PATIENT
  Age: 20 Year
  Sex: Male
  Weight: 90.7 kg

DRUGS (1)
  1. CELEBREX [Suspect]
     Indication: PAIN
     Dosage: 200 MG, ORAL
     Route: 048
     Dates: start: 20040706

REACTIONS (6)
  - DRUG HYPERSENSITIVITY [None]
  - HAEMORRHAGE [None]
  - PRURITUS [None]
  - SELF INJURIOUS BEHAVIOUR [None]
  - SWELLING [None]
  - URTICARIA [None]
